FAERS Safety Report 8637871 (Version 2)
Quarter: 2013Q2

REPORT INFORMATION
  Report Type: Spontaneous
  Country: CZ (occurrence: CZ)
  Receive Date: 20120627
  Receipt Date: 20130530
  Transmission Date: 20140414
  Serious: Yes (Other)
  Sender: FDA-Public Use
  Company Number: CZ-UCBSA-060150

PATIENT
  Age: 59 Year
  Sex: Male

DRUGS (3)
  1. CIMZIA [Suspect]
     Indication: RHEUMATOID ARTHRITIS
     Dates: end: 201206
  2. METHOTREXATE [Concomitant]
     Indication: RHEUMATOID ARTHRITIS
     Dosage: FOR 6 YEARS, DOSE :15
     Route: 048
  3. ACIDIUM FOLICUM [Concomitant]
     Indication: RHEUMATOID ARTHRITIS
     Dosage: FOR 6 YEARS, DOSE: 10 WEEKLY
     Route: 048

REACTIONS (1)
  - Latent tuberculosis [Recovered/Resolved]
